FAERS Safety Report 9790353 (Version 1)
Quarter: 2013Q4

REPORT INFORMATION
  Report Type: Spontaneous
  Country: CA (occurrence: CA)
  Receive Date: 20131231
  Receipt Date: 20131231
  Transmission Date: 20140711
  Serious: Yes (Death)
  Sender: FDA-Public Use
  Company Number: CA-JNJFOC-20131215115

PATIENT
  Sex: 0

DRUGS (3)
  1. INFLIXIMAB, RECOMBINANT [Suspect]
     Indication: ACUTE GRAFT VERSUS HOST DISEASE
     Route: 042
  2. METHYLPREDNISOLONE [Suspect]
     Indication: ACUTE GRAFT VERSUS HOST DISEASE
     Dosage: FOR 7 DAYS
     Route: 065
  3. PENTOSTATIN [Suspect]
     Indication: ACUTE GRAFT VERSUS HOST DISEASE
     Route: 065
     Dates: start: 200503, end: 201003

REACTIONS (3)
  - Enterococcal infection [Fatal]
  - Fungal infection [Fatal]
  - Off label use [Unknown]
